FAERS Safety Report 17805647 (Version 1)
Quarter: 2020Q2

REPORT INFORMATION
  Report Type: Spontaneous
  Country: US (occurrence: US)
  Receive Date: 20200519
  Receipt Date: 20200519
  Transmission Date: 20200714
  Serious: No
  Sender: FDA-Public Use
  Company Number: US-APOTEX-2020AP010510

PATIENT
  Sex: Female

DRUGS (1)
  1. FLUTICASONE. [Suspect]
     Active Substance: FLUTICASONE
     Indication: NASAL CONGESTION
     Dosage: UNK UNK, SINGLE, 2 SPARYS PER NOSTRIL
     Route: 045

REACTIONS (2)
  - Drug ineffective [Unknown]
  - Nasal congestion [Unknown]
